FAERS Safety Report 4413774-0 (Version None)
Quarter: 2004Q3

REPORT INFORMATION
  Report Type: 
  Country: None (occurrence: None)
  Receive Date: 20040803
  Receipt Date: 20040726
  Transmission Date: 20050211
  Serious: Yes (Life-Threatening, Hospitalization)
  Sender: FDA-Public Use
  Company Number: JP-BRISTOL-MYERS SQUIBB COMPANY-12653903

PATIENT
  Age: 70 Year
  Sex: Female

DRUGS (3)
  1. PARAPLATIN [Suspect]
     Indication: LYMPHOMA
     Route: 041
     Dates: start: 20040618, end: 20040621
  2. ENDOXAN [Suspect]
     Indication: LYMPHOMA
     Route: 041
     Dates: start: 20040622, end: 20040623
  3. UROMITEXAN [Suspect]
     Indication: PROPHYLACTIC CHEMOTHERAPY
     Route: 042
     Dates: start: 20040622, end: 20040623

REACTIONS (2)
  - CONVULSION [None]
  - MUSCLE TWITCHING [None]
